FAERS Safety Report 9780492 (Version 1)
Quarter: 2013Q4

REPORT INFORMATION
  Report Type: Spontaneous
  Country: BR (occurrence: BR)
  Receive Date: 20131224
  Receipt Date: 20131224
  Transmission Date: 20140711
  Serious: Yes (Disabling, Other)
  Sender: FDA-Public Use
  Company Number: BR-ROCHE-1324332

PATIENT
  Age: 54 Year
  Sex: Female

DRUGS (2)
  1. LUCENTIS [Suspect]
     Indication: DIABETIC RETINAL OEDEMA
     Dosage: 1 APPLICATION EACH EYE
     Route: 050
     Dates: start: 20131021, end: 20131021
  2. METFORMIN [Concomitant]
     Route: 065

REACTIONS (8)
  - Ocular hyperaemia [Unknown]
  - Vitritis [Unknown]
  - Hypopyon [Unknown]
  - Uveitis [Unknown]
  - Endophthalmitis [Recovering/Resolving]
  - Visual impairment [Unknown]
  - Gram stain positive [Unknown]
  - Inappropriate schedule of drug administration [Unknown]
